FAERS Safety Report 4383664-0 (Version None)
Quarter: 2004Q2

REPORT INFORMATION
  Report Type: 
  Country: None (occurrence: None)
  Receive Date: 20040623
  Receipt Date: 20040610
  Transmission Date: 20050107
  Serious: Yes (Hospitalization)
  Sender: FDA-Public Use
  Company Number: 362655

PATIENT
  Age: 88 Year
  Sex: Male

DRUGS (11)
  1. KREDEX [Suspect]
     Route: 048
     Dates: start: 20040115, end: 20040318
  2. DIGITRIN [Suspect]
     Dates: end: 20040216
  3. ACETAMINOPHEN [Concomitant]
  4. PROPAVAN [Concomitant]
  5. WARAN [Concomitant]
  6. SPIRONOLACTONE [Concomitant]
  7. ATROVENT [Concomitant]
  8. FUROSEMIDE [Concomitant]
  9. TRIATEC [Concomitant]
  10. ACETYLCYSTEINE [Concomitant]
  11. IMDUR [Concomitant]

REACTIONS (5)
  - BRADYCARDIA [None]
  - BREAST PAIN [None]
  - FATIGUE [None]
  - NAUSEA [None]
  - POISONING [None]
